FAERS Safety Report 23981820 (Version 1)
Quarter: 2024Q2

REPORT INFORMATION
  Report Type: Report from Study
  Country: US (occurrence: US)
  Receive Date: 20240617
  Receipt Date: 20240617
  Transmission Date: 20240716
  Serious: Yes (Other)
  Sender: FDA-Public Use
  Company Number: US-BAYER-2021-182249

PATIENT
  Age: 71 Year
  Sex: Male

DRUGS (1)
  1. BETASERON [Suspect]
     Active Substance: INTERFERON BETA-1B
     Indication: Multiple sclerosis
     Dosage: 1 ML, QOD
     Route: 058

REACTIONS (10)
  - Myocardial infarction [Unknown]
  - Multiple sclerosis [Not Recovered/Not Resolved]
  - Cataract [Not Recovered/Not Resolved]
  - Paralysis [Unknown]
  - Amnesia [Not Recovered/Not Resolved]
  - Multiple use of single-use product [None]
  - Visual field defect [None]
  - Eye swelling [Not Recovered/Not Resolved]
  - Visual impairment [Unknown]
  - Gait disturbance [Not Recovered/Not Resolved]

NARRATIVE: CASE EVENT DATE: 20030101
